FAERS Safety Report 5673254-1 (Version None)
Quarter: 2008Q1

REPORT INFORMATION
  Report Type: 
  Country: None (occurrence: None)
  Receive Date: 20080317
  Receipt Date: 20080313
  Transmission Date: 20080703
  Serious: Yes (Hospitalization, Other)
  Sender: FDA-Public Use
  Company Number: 08032432

PATIENT
  Age: 87 Year
  Sex: Male

DRUGS (6)
  1. COUMADIN [Suspect]
     Indication: DRUG USE FOR UNKNOWN INDICATION
     Dosage: 5MG, QD, ORAL
     Route: 048
     Dates: end: 20080115
  2. TARCEVA [Suspect]
     Indication: NON-SMALL CELL LUNG CANCER
     Dosage: 150MG, 5DAYS/WK, ORAL
     Route: 048
     Dates: start: 20071115
  3. COUMADIN [Suspect]
     Indication: DRUG USE FOR UNKNOWN INDICATION
     Dosage: 2.5MG, QD, ORAL
     Route: 048
     Dates: start: 20080116
  4. SIMOVIL (SIMVASTATIN) [Concomitant]
  5. FUSID (FRUSEMIDE) [Concomitant]
  6. ISOSORBIDE MONONITRATE [Concomitant]

REACTIONS (2)
  - EPISTAXIS [None]
  - INTERNATIONAL NORMALISED RATIO INCREASED [None]
